FAERS Safety Report 8150302 (Version 5)
Quarter: 2014Q1

REPORT INFORMATION
  Report Type: Spontaneous
  Country: US (occurrence: US)
  Receive Date: 20110922
  Receipt Date: 20140122
  Transmission Date: 20141002
  Serious: Yes (Other)
  Sender: FDA-Public Use
  Company Number: US-ASTRAZENECA-2010SE29533

PATIENT
  Age: 55 Year
  Sex: Female
  Weight: 52.8 kg

DRUGS (25)
  1. SEROQUEL XR [Suspect]
     Indication: BIPOLAR DISORDER
     Route: 048
     Dates: start: 2006, end: 2009
  2. SEROQUEL XR [Suspect]
     Indication: SLEEP DISORDER
     Route: 048
     Dates: start: 2006, end: 2009
  3. SEROQUEL XR [Suspect]
     Indication: AFFECTIVE DISORDER
     Route: 048
     Dates: start: 2006, end: 2009
  4. SEROQUEL XR [Suspect]
     Indication: BIPOLAR DISORDER
     Route: 048
     Dates: start: 2009, end: 201006
  5. SEROQUEL XR [Suspect]
     Indication: SLEEP DISORDER
     Route: 048
     Dates: start: 2009, end: 201006
  6. SEROQUEL XR [Suspect]
     Indication: AFFECTIVE DISORDER
     Route: 048
     Dates: start: 2009, end: 201006
  7. SEROQUEL XR [Suspect]
     Indication: BIPOLAR DISORDER
     Route: 048
     Dates: start: 201006
  8. SEROQUEL XR [Suspect]
     Indication: SLEEP DISORDER
     Route: 048
     Dates: start: 201006
  9. SEROQUEL XR [Suspect]
     Indication: AFFECTIVE DISORDER
     Route: 048
     Dates: start: 201006
  10. CRESTOR [Suspect]
     Indication: BLOOD CHOLESTEROL ABNORMAL
     Route: 048
     Dates: start: 2010, end: 20131217
  11. CRESTOR [Suspect]
     Indication: CARDIAC DISORDER
     Route: 048
     Dates: start: 2010, end: 20131217
  12. LANTUS [Concomitant]
     Indication: DIABETES MELLITUS
  13. ATENOLOL [Concomitant]
     Indication: PALPITATIONS
  14. DEPAKOTE [Concomitant]
  15. PROTONIX [Concomitant]
     Indication: GASTROOESOPHAGEAL REFLUX DISEASE
  16. GLUCOMETZA [Concomitant]
     Indication: DIABETES MELLITUS
  17. RAMAPIL [Concomitant]
  18. LIPITOR [Concomitant]
  19. SOLOSTAR [Concomitant]
     Indication: DIABETES MELLITUS
  20. PRISTIQUE [Concomitant]
  21. GENUVIA [Concomitant]
  22. TOPAMAX [Concomitant]
  23. IRON [Concomitant]
     Indication: ANAEMIA
     Route: 048
     Dates: start: 2011
  24. NOVALOG [Concomitant]
     Indication: DIABETES MELLITUS
     Route: 058
     Dates: start: 2011
  25. NOVALOG [Concomitant]
     Indication: DIABETES MELLITUS
     Dosage: 70 30 BID
     Route: 058

REACTIONS (36)
  - Enzyme abnormality [Unknown]
  - Blood urine present [Unknown]
  - Confusional state [Unknown]
  - Haemorrhage [Unknown]
  - Stress [Unknown]
  - Weight decreased [Unknown]
  - Hypoaesthesia [Not Recovered/Not Resolved]
  - Memory impairment [Unknown]
  - Pain in extremity [Recovered/Resolved]
  - Nausea [Recovered/Resolved]
  - Muscular weakness [Unknown]
  - Amnesia [Unknown]
  - Blood glucose increased [Unknown]
  - Tremor [Recovering/Resolving]
  - Somnolence [Recovering/Resolving]
  - Hypotension [Unknown]
  - Dizziness [Unknown]
  - Dizziness [Recovered/Resolved]
  - Muscle spasms [Recovered/Resolved]
  - Asthenia [Recovered/Resolved]
  - Drug ineffective [Unknown]
  - Spinal column stenosis [Unknown]
  - Accident [Unknown]
  - Cervical polyp [Recovered/Resolved]
  - Amnesia [Unknown]
  - Ovarian cyst [Not Recovered/Not Resolved]
  - Muscle strain [Not Recovered/Not Resolved]
  - Sleep disorder due to a general medical condition [Not Recovered/Not Resolved]
  - Pain [Not Recovered/Not Resolved]
  - Gait disturbance [Not Recovered/Not Resolved]
  - Hallucination [Not Recovered/Not Resolved]
  - Fall [Recovering/Resolving]
  - Urine analysis abnormal [Recovered/Resolved]
  - Anaemia [Unknown]
  - Diabetic retinopathy [Unknown]
  - Arterial stenosis [Unknown]
